FAERS Safety Report 17896885 (Version 3)
Quarter: 2020Q4

REPORT INFORMATION
  Report Type: Spontaneous
  Country: US (occurrence: US)
  Receive Date: 20200615
  Receipt Date: 20201014
  Transmission Date: 20210113
  Serious: Yes (Other)
  Sender: FDA-Public Use
  Company Number: US-AMGEN-USASP2020091904

PATIENT
  Age: 87 Year
  Sex: Female

DRUGS (4)
  1. VITAMIN D [COLECALCIFEROL] [Concomitant]
     Active Substance: CHOLECALCIFEROL
  2. PROLIA [Suspect]
     Active Substance: DENOSUMAB
     Indication: OSTEOPOROSIS POSTMENOPAUSAL
     Dosage: UNK
     Route: 065
     Dates: start: 2019
  3. VITAMINS NOS [Concomitant]
     Active Substance: VITAMINS
  4. CALCIUM [Concomitant]
     Active Substance: CALCIUM

REACTIONS (5)
  - Inappropriate schedule of product administration [Unknown]
  - Bone loss [Unknown]
  - Stress fracture [Unknown]
  - Fall [Unknown]
  - Dental restoration failure [Unknown]

NARRATIVE: CASE EVENT DATE: 2019
